FAERS Safety Report 10435669 (Version 1)
Quarter: 2014Q3

REPORT INFORMATION
  Report Type: Report from Study
  Country: US (occurrence: US)
  Receive Date: 20140908
  Receipt Date: 20140908
  Transmission Date: 20150326
  Serious: No
  Sender: FDA-Public Use
  Company Number: PHEH2014US017031

PATIENT
  Age: 64 Year
  Sex: Male

DRUGS (4)
  1. TASIGNA [Suspect]
     Active Substance: NILOTINIB
     Dosage: 150 MG, UNK
  2. SPRYCEL [Suspect]
     Active Substance: DASATINIB
  3. TASIGNA [Suspect]
     Active Substance: NILOTINIB
     Dosage: 200 MG, UNK
  4. SPRYCEL [Suspect]
     Active Substance: DASATINIB
     Dosage: 100 MG, UNK

REACTIONS (4)
  - Rash [Unknown]
  - Blood pressure increased [Unknown]
  - Chest discomfort [Unknown]
  - Pleural effusion [Unknown]

NARRATIVE: CASE EVENT DATE: 201404
